FAERS Safety Report 8805551 (Version 1)
Quarter: 2012Q4

REPORT INFORMATION
  Report Type: Spontaneous
  Country: US (occurrence: None)
  Receive Date: 20120917
  Receipt Date: 20120917
  Transmission Date: 20130627
  Serious: Yes (Hospitalization)
  Sender: FDA-Public Use
  Company Number: 7160231

PATIENT
  Age: 54 Year
  Sex: Female

DRUGS (2)
  1. NOVOTHYRAL [Suspect]
     Indication: RADIOACTIVE IODINE THERAPY
     Route: 048
  2. NOVOTHYRAL [Suspect]
     Indication: RADIOACTIVE IODINE THERAPY
     Dosage: 75 MCG,HALF TABLET A DAY)
     Route: 048

REACTIONS (1)
  - Arrhythmia [None]
